FAERS Safety Report 18217353 (Version 1)
Quarter: 2020Q3

REPORT INFORMATION
  Report Type: Spontaneous
  Country: AU (occurrence: AU)
  Receive Date: 20200901
  Receipt Date: 20200901
  Transmission Date: 20201103
  Serious: Yes (Hospitalization, Disabling)
  Sender: FDA-Public Use
  Company Number: AU-PFIZER INC-15765

PATIENT
  Age: 25 Year
  Sex: Male

DRUGS (17)
  1. METHOTREXATE SODIUM. [Suspect]
     Active Substance: METHOTREXATE SODIUM
     Dosage: 12 MG, UNK
     Route: 037
     Dates: start: 20030609
  2. IDARUBICIN [Concomitant]
     Active Substance: IDARUBICIN
     Indication: NON-HODGKIN^S LYMPHOMA RECURRENT
     Dosage: UNK, AFTER RELAPSE 2 MONTHS LATER, IDA?FLAG SALVAGE
     Route: 042
     Dates: start: 20031001
  3. CYTARABINE. [Suspect]
     Active Substance: CYTARABINE
     Dosage: 100 MG, UNK
     Route: 037
     Dates: start: 20030115
  4. METHOTREXATE SODIUM. [Suspect]
     Active Substance: METHOTREXATE SODIUM
     Dosage: 12 MG, UNK
     Route: 037
     Dates: start: 20030312
  5. CYTARABINE. [Suspect]
     Active Substance: CYTARABINE
     Dosage: UNK, HIGH DOSE; 4CYCLES
     Route: 042
     Dates: start: 20030101, end: 20030701
  6. CYTARABINE. [Suspect]
     Active Substance: CYTARABINE
     Dosage: 100 MG, UNK
     Route: 037
     Dates: start: 20031219
  7. METHOTREXATE SODIUM. [Suspect]
     Active Substance: METHOTREXATE SODIUM
     Indication: NON-HODGKIN^S LYMPHOMA
     Dosage: UNK, HIGH DOSE; 4 CYCLES
     Route: 042
     Dates: start: 20030101, end: 20030701
  8. VITAMINS /00067501/ [Concomitant]
     Active Substance: VITAMINS
     Indication: PRODUCT USED FOR UNKNOWN INDICATION
     Route: 065
  9. CYTARABINE. [Suspect]
     Active Substance: CYTARABINE
     Dosage: 100 MG, UNK
     Route: 037
     Dates: start: 20030217
  10. METHOTREXATE SODIUM. [Suspect]
     Active Substance: METHOTREXATE SODIUM
     Dosage: 12 MG, UNK
     Route: 037
     Dates: start: 20030110
  11. FLUDARABINE PHOSPHATE. [Concomitant]
     Active Substance: FLUDARABINE PHOSPHATE
     Indication: NON-HODGKIN^S LYMPHOMA RECURRENT
     Dosage: UNK, AFTER RELAPSE 2 MONTHS LATER, IDA?FLAG SALVAGE
     Route: 042
     Dates: start: 20031001
  12. VINCRISTINE SULFATE. [Concomitant]
     Active Substance: VINCRISTINE SULFATE
     Indication: NON-HODGKIN^S LYMPHOMA
     Dosage: REDUCED DOSES IN THE SECOND AND THIRD CYCLE, FREQ: PER_CYCLE
     Route: 042
     Dates: start: 20030101, end: 20030701
  13. CYTARABINE. [Suspect]
     Active Substance: CYTARABINE
     Indication: NON-HODGKIN^S LYMPHOMA
     Dosage: AFTER ARELAPSE 2 MONTHS LATER
     Route: 042
  14. METHOTREXATE SODIUM. [Suspect]
     Active Substance: METHOTREXATE SODIUM
     Dosage: 12 MG, UNK
     Route: 037
     Dates: start: 20031018
  15. DEXAMETHASONE SODIUM PHOSPHATE. [Concomitant]
     Active Substance: DEXAMETHASONE SODIUM PHOSPHATE
     Indication: NON-HODGKIN^S LYMPHOMA
     Dosage: UNK
     Route: 042
     Dates: start: 20030101, end: 20030701
  16. DOXORUBICIN HYDROCHLORIDE. [Concomitant]
     Active Substance: DOXORUBICIN HYDROCHLORIDE
     Indication: NON-HODGKIN^S LYMPHOMA
     Dosage: AS PER HYPER?CVAD THERAPY, FREQ: PER_CYCLE
     Route: 042
     Dates: start: 20030101, end: 20030701
  17. CYCLOPHOSPHAMIDE. [Concomitant]
     Active Substance: CYCLOPHOSPHAMIDE
     Indication: NON-HODGKIN^S LYMPHOMA
     Dosage: FIRST CYCLE WITH REDUCED DOSES IN THE SECOND AND THIRD CYCLES, FREQ: PER_CYCLE
     Route: 042
     Dates: start: 20030101, end: 20030701

REACTIONS (1)
  - Myelopathy [Not Recovered/Not Resolved]

NARRATIVE: CASE EVENT DATE: 20031222
